FAERS Safety Report 8384575-6 (Version None)
Quarter: 2012Q2

REPORT INFORMATION
  Report Type: 
  Country: None (occurrence: None)
  Receive Date: 20120524
  Receipt Date: 20120517
  Transmission Date: 20120825
  Serious: Yes (Hospitalization, Other)
  Sender: FDA-Public Use
  Company Number: US-ABBOTT-12P-163-0927650-00

PATIENT
  Age: 59 Year
  Sex: Female

DRUGS (11)
  1. SIMVASTATIN [Concomitant]
     Indication: BLOOD CHOLESTEROL INCREASED
     Dates: end: 20120401
  2. LISINOPRIL [Concomitant]
     Indication: PRODUCT USED FOR UNKNOWN INDICATION
     Dates: end: 20120401
  3. DEPAKOTE [Concomitant]
     Indication: BIPOLAR DISORDER
     Route: 048
  4. HUMIRA [Suspect]
     Indication: PSORIASIS
     Dates: start: 20110510, end: 20120403
  5. RESTORIL [Concomitant]
     Indication: INSOMNIA
     Dosage: 2-3 TABS DAILY
     Route: 048
  6. PRAVASTATIN [Concomitant]
     Indication: BLOOD CHOLESTEROL INCREASED
     Dosage: 40 MG DAILY
     Route: 048
     Dates: start: 20120401
  7. PREDNISONE [Suspect]
     Indication: PNEUMONIA
     Dates: start: 20120401
  8. GEODON [Concomitant]
     Indication: BIPOLAR DISORDER
     Dosage: 80 MG DAILY
     Route: 048
  9. DILTIAZEM [Concomitant]
     Indication: HEART RATE INCREASED
     Route: 048
  10. SEROQUEL [Concomitant]
     Indication: BIPOLAR DISORDER
     Dosage: 600 MG DAILY
     Route: 048
  11. ACYCLOVIR [Concomitant]
     Indication: HERPES VIRUS INFECTION
     Route: 048

REACTIONS (12)
  - BLOOD TRIGLYCERIDES INCREASED [None]
  - BLOOD GLUCOSE INCREASED [None]
  - CHRONIC OBSTRUCTIVE PULMONARY DISEASE [None]
  - PYREXIA [None]
  - PNEUMONIA [None]
  - DRUG EFFECT DECREASED [None]
  - CHILLS [None]
  - RESPIRATORY TRACT CONGESTION [None]
  - PSORIASIS [None]
  - BASAL CELL CARCINOMA [None]
  - SLEEP APNOEA SYNDROME [None]
  - PULMONARY OEDEMA [None]
